FAERS Safety Report 9353314 (Version 3)
Quarter: 2013Q3

REPORT INFORMATION
  Report Type: Spontaneous
  Country: FR (occurrence: FR)
  Receive Date: 20130618
  Receipt Date: 20130708
  Transmission Date: 20140515
  Serious: Yes (Death, Hospitalization)
  Sender: FDA-Public Use
  Company Number: FR-BRISTOL-MYERS SQUIBB COMPANY-19020601

PATIENT
  Age: 76 Year
  Sex: Male

DRUGS (11)
  1. METFORMIN HCL [Suspect]
     Dosage: METFORMIN 850MG
     Route: 048
     Dates: start: 201301, end: 20130131
  2. APROVEL TABS 150 MG [Interacting]
     Route: 048
  3. PREVISCAN [Interacting]
     Route: 048
     Dates: start: 2003, end: 20130131
  4. BISOPROLOL HEMIFUMARATE [Interacting]
     Route: 048
     Dates: end: 20130131
  5. SIMVASTATIN [Interacting]
     Route: 048
  6. HEMIGOXINE NATIVELLE [Interacting]
     Dosage: TAB
     Route: 048
  7. GANFORT [Interacting]
     Route: 047
  8. MOPRAL [Interacting]
     Route: 048
     Dates: end: 20130118
  9. NEXIUM [Interacting]
     Dates: start: 20130118
  10. KARDEGIC [Interacting]
     Dosage: POWDER FOR ORAL SOL
     Route: 048
     Dates: start: 2013
  11. LOVENOX [Interacting]
     Route: 058
     Dates: start: 201301

REACTIONS (5)
  - Ischaemic stroke [Fatal]
  - Overdose [Fatal]
  - Anaemia [Fatal]
  - Drug interaction [Unknown]
  - International normalised ratio increased [Recovered/Resolved]
